FAERS Safety Report 5158604-7 (Version None)
Quarter: 2006Q4

REPORT INFORMATION
  Report Type: 
  Country: None (occurrence: None)
  Receive Date: 20061128
  Receipt Date: 20061117
  Transmission Date: 20070319
  Serious: Yes (Hospitalization)
  Sender: FDA-Public Use
  Company Number: JP-MERCK-0611USA06191

PATIENT

DRUGS (1)
  1. CLINORIL [Suspect]
     Route: 048

REACTIONS (2)
  - FOOD INTERACTION [None]
  - SHOCK [None]
